FAERS Safety Report 25231796 (Version 1)
Quarter: 2025Q2

REPORT INFORMATION
  Report Type: Spontaneous
  Country: FR (occurrence: FR)
  Receive Date: 20250423
  Receipt Date: 20250423
  Transmission Date: 20250717
  Serious: Yes (Other)
  Sender: B BRAUN
  Company Number: FR-B.Braun Medical Inc.-2175483

PATIENT
  Age: 64 Year
  Sex: Male
  Weight: 76 kg

DRUGS (8)
  1. POTASSIUM CHLORIDE [Suspect]
     Active Substance: POTASSIUM CHLORIDE
  2. AMIODARONE HYDROCHLORIDE [Suspect]
     Active Substance: AMIODARONE HYDROCHLORIDE
  3. TAMSULOSIN HYDROCHLORIDE [Suspect]
     Active Substance: TAMSULOSIN HYDROCHLORIDE
  4. SPIRONOLACTONE [Suspect]
     Active Substance: SPIRONOLACTONE
  5. LANSOPRAZOLE [Suspect]
     Active Substance: LANSOPRAZOLE
  6. DAPAGLIFLOZIN [Suspect]
     Active Substance: DAPAGLIFLOZIN
  7. CALCIPARINE [Suspect]
     Active Substance: HEPARIN CALCIUM
  8. BISOPROLOL FUMARATE [Suspect]
     Active Substance: BISOPROLOL FUMARATE

REACTIONS (4)
  - Sepsis [Unknown]
  - Pulmonary mass [Unknown]
  - Heparin-induced thrombocytopenia [Recovering/Resolving]
  - Pulmonary mass [Unknown]
